FAERS Safety Report 6637470-4 (Version None)
Quarter: 2010Q1

REPORT INFORMATION
  Report Type: 
  Country: None (occurrence: None)
  Receive Date: 20100316
  Receipt Date: 20100308
  Transmission Date: 20100710
  Serious: Yes (Other)
  Sender: FDA-Public Use
  Company Number: JP-BRISTOL-MYERS SQUIBB COMPANY-14945877

PATIENT
  Age: 35 Year
  Sex: Female

DRUGS (3)
  1. ABILIFY [Suspect]
     Indication: SCHIZOPHRENIA
     Dosage: 12MG:27JUN-3JUL09(7D) 12MG:4-10JUL 18MG:11-24JUL 24MG:25JUL-4DEC09(133D) 12MG:5DEC-25DEC10
     Route: 048
     Dates: start: 20090627, end: 20100122
  2. SEROQUEL [Suspect]
     Indication: SCHIZOPHRENIA
     Dosage: 250MG:UNK-17JUL09 200MG:18-24JUL(7D) 50MG:25JUL-6AUG(13D)(TID)-BID(7-21AUG) 25MG:22AUG-4SEP09
     Route: 048
     Dates: end: 20090915
  3. ETIZOLAM [Concomitant]
     Dosage: TABLET
     Dates: start: 20091017

REACTIONS (3)
  - AKATHISIA [None]
  - MASTICATION DISORDER [None]
  - TARDIVE DYSKINESIA [None]
